FAERS Safety Report 8225970-5 (Version None)
Quarter: 2012Q1

REPORT INFORMATION
  Report Type: 
  Country: None (occurrence: None)
  Receive Date: 20120321
  Receipt Date: 20120214
  Transmission Date: 20120608
  Serious: Yes (Other)
  Sender: FDA-Public Use
  Company Number: CHPA2012US002787

PATIENT
  Age: 37 Year
  Sex: Male

DRUGS (2)
  1. NODOZ [Suspect]
     Indication: DEPRESSED LEVEL OF CONSCIOUSNESS
     Dosage: 1 DF, PRN
     Route: 048
  2. OMEPRAZOLE [Concomitant]

REACTIONS (3)
  - BLOOD GLUCOSE DECREASED [None]
  - IRRITABILITY [None]
  - CONCOMITANT DISEASE AGGRAVATED [None]
